FAERS Safety Report 8389725 (Version 2)
Quarter: 2013Q4

REPORT INFORMATION
  Report Type: Spontaneous
  Country: US (occurrence: US)
  Receive Date: 20120203
  Receipt Date: 20131206
  Transmission Date: 20140711
  Serious: Yes (Hospitalization)
  Sender: FDA-Public Use
  Company Number: US-GLAXOSMITHKLINE-A0913521A

PATIENT
  Age: 59 Year
  Sex: Female

DRUGS (6)
  1. AVANDIA [Suspect]
     Indication: DIABETES MELLITUS
     Dosage: 4MG TWICE PER DAY
     Route: 048
     Dates: start: 200201, end: 200605
  2. AVANDAMET [Suspect]
     Indication: DIABETES MELLITUS
     Route: 048
     Dates: start: 200304, end: 201001
  3. LISINOPRIL [Concomitant]
  4. TOPROL XL [Concomitant]
  5. NEXIUM [Concomitant]
  6. INSULIN [Concomitant]

REACTIONS (4)
  - Coronary artery disease [Unknown]
  - Myocardial infarction [Unknown]
  - Cardiovascular disorder [Unknown]
  - Cardiac disorder [Unknown]
